FAERS Safety Report 8776259 (Version 6)
Quarter: 2013Q4

REPORT INFORMATION
  Report Type: Report from Study
  Country: US (occurrence: US)
  Receive Date: 20120910
  Receipt Date: 20131112
  Transmission Date: 20140711
  Serious: Yes (Life-Threatening, Hospitalization)
  Sender: FDA-Public Use
  Company Number: US-BRISTOL-MYERS SQUIBB COMPANY-16917338

PATIENT
  Age: 61 Year
  Sex: Female
  Weight: 80.7 kg

DRUGS (1)
  1. IPILIMUMAB [Suspect]
     Indication: MALIGNANT MELANOMA
     Dosage: LAST DOSE:03AUG12;799 MG TOTAL?NO OF COURSE:04
     Route: 042
     Dates: start: 20120521

REACTIONS (11)
  - Hypotension [Recovering/Resolving]
  - Colitis [Recovering/Resolving]
  - Diarrhoea [Recovering/Resolving]
  - Hypokalaemia [Recovered/Resolved]
  - Hyponatraemia [Recovering/Resolving]
  - Hypoalbuminaemia [Recovering/Resolving]
  - Hypocalcaemia [Recovering/Resolving]
  - Oedema peripheral [Recovering/Resolving]
  - Anaemia [Recovering/Resolving]
  - Adrenal insufficiency [Recovering/Resolving]
  - Optic neuritis [Recovering/Resolving]
